FAERS Safety Report 24139463 (Version 5)
Quarter: 2025Q1

REPORT INFORMATION
  Report Type: Report from Study
  Country: JP (occurrence: JP)
  Receive Date: 20240726
  Receipt Date: 20250317
  Transmission Date: 20250409
  Serious: Yes (Other)
  Sender: UCB
  Company Number: JP-UCBJ-CD202301148UCBPHAPROD

PATIENT
  Age: 51 Year
  Sex: Female
  Weight: 45 kg

DRUGS (18)
  1. FENFLURAMINE HYDROCHLORIDE [Suspect]
     Active Substance: FENFLURAMINE HYDROCHLORIDE
     Indication: Severe myoclonic epilepsy of infancy
     Dosage: 0.1 MILLIGRAM/KILOGRAM, 2X/DAY (BID)
     Route: 048
     Dates: start: 20230107, end: 20230209
  2. FENFLURAMINE HYDROCHLORIDE [Suspect]
     Active Substance: FENFLURAMINE HYDROCHLORIDE
     Dosage: 2 MILLILITER, ONCE DAILY (QD)
     Route: 048
     Dates: start: 20230113
  3. FENFLURAMINE HYDROCHLORIDE [Suspect]
     Active Substance: FENFLURAMINE HYDROCHLORIDE
     Dosage: 0.15 MILLIGRAM/KILOGRAM, 2X/DAY (BID)
     Route: 048
     Dates: start: 20230210, end: 20230512
  4. FENFLURAMINE HYDROCHLORIDE [Suspect]
     Active Substance: FENFLURAMINE HYDROCHLORIDE
     Dosage: 0.28 MILLIGRAM/KILOGRAM, 2X/DAY (BID)
     Route: 048
     Dates: start: 20230513, end: 20230804
  5. FENFLURAMINE HYDROCHLORIDE [Suspect]
     Active Substance: FENFLURAMINE HYDROCHLORIDE
     Dosage: 0.25 MILLIGRAM/KILOGRAM, 2X/DAY (BID)
     Route: 048
     Dates: start: 20230805, end: 20240303
  6. FENFLURAMINE HYDROCHLORIDE [Suspect]
     Active Substance: FENFLURAMINE HYDROCHLORIDE
     Dosage: 0.15 MILLIGRAM/KILOGRAM, 2X/DAY (BID)
     Dates: start: 20240304, end: 20250113
  7. FENFLURAMINE HYDROCHLORIDE [Suspect]
     Active Substance: FENFLURAMINE HYDROCHLORIDE
     Dosage: 0.15 MILLIGRAM/KILOGRAM, 2X/DAY (BID)
     Dates: start: 20250114
  8. CLORAZEPATE DIPOTASSIUM [Concomitant]
     Active Substance: CLORAZEPATE DIPOTASSIUM
     Indication: Severe myoclonic epilepsy of infancy
     Dosage: 7.5 MILLIGRAM, ONCE DAILY (QD)
     Route: 048
  9. ACCENON [Concomitant]
     Indication: Severe myoclonic epilepsy of infancy
     Dosage: 0.2 GRAM, ONCE DAILY (QD)
     Route: 048
     Dates: end: 20231013
  10. ACCENON [Concomitant]
     Dosage: 0.1 GRAM, ONCE DAILY (QD)
     Route: 048
     Dates: start: 20231014, end: 20240104
  11. PHENOBARBITAL [Concomitant]
     Active Substance: PHENOBARBITAL
     Indication: Severe myoclonic epilepsy of infancy
     Dosage: 60 MILLIGRAM, ONCE DAILY (QD)
     Route: 048
  12. VALPROATE SODIUM [Concomitant]
     Active Substance: VALPROATE SODIUM
     Indication: Severe myoclonic epilepsy of infancy
     Dosage: 600 MILLIGRAM, ONCE DAILY (QD)
     Route: 048
  13. MYSTAN [Concomitant]
     Active Substance: CLOBAZAM
     Indication: Severe myoclonic epilepsy of infancy
     Dosage: 0.25 MILLIGRAM, ONCE DAILY (QD)
     Route: 048
  14. DIACOMIT [Concomitant]
     Active Substance: STIRIPENTOL
     Indication: Severe myoclonic epilepsy of infancy
     Dosage: 750 MILLIGRAM, ONCE DAILY (QD)
     Route: 048
  15. LEVOCARNITINE FF [Concomitant]
     Indication: Product used for unknown indication
     Dosage: 3000 MILLIGRAM, ONCE DAILY (QD)
     Route: 048
     Dates: end: 20231028
  16. LEVOCARNITINE FF [Concomitant]
     Dosage: 3000 MILLIGRAM, ONCE DAILY (QD)
     Route: 048
     Dates: start: 20231124
  17. DIAZEPAM [Concomitant]
     Active Substance: DIAZEPAM
     Indication: Severe myoclonic epilepsy of infancy
     Dosage: 10 MILLIGRAM, ONCE DAILY (QD)
     Route: 054
  18. VOLTAREN [Concomitant]
     Active Substance: DICLOFENAC SODIUM
     Indication: Pyrexia
     Dosage: 25 MILLIGRAM, ONCE DAILY (QD)
     Route: 054

REACTIONS (7)
  - Loss of control of legs [Recovered/Resolved]
  - Serotonin syndrome [Recovered/Resolved]
  - Pyrexia [Recovered/Resolved]
  - Weight decreased [Not Recovered/Not Resolved]
  - Hyperammonaemia [Recovered/Resolved]
  - Intermenstrual bleeding [Recovered/Resolved]
  - Off label use [Unknown]

NARRATIVE: CASE EVENT DATE: 20230113
